FAERS Safety Report 18479147 (Version 2)
Quarter: 2025Q2

REPORT INFORMATION
  Report Type: Spontaneous
  Country: US (occurrence: US)
  Receive Date: 20201109
  Receipt Date: 20250628
  Transmission Date: 20250717
  Serious: Yes (Hospitalization, Other)
  Sender: AUROBINDO
  Company Number: US-MLMSERVICE-20201021-2538863-1

PATIENT
  Age: 75 Year
  Sex: Female

DRUGS (1)
  1. METHOTREXATE [Suspect]
     Active Substance: METHOTREXATE
     Indication: Polymyalgia rheumatica
     Route: 065

REACTIONS (4)
  - Tuberculosis of central nervous system [Recovered/Resolved]
  - Infection reactivation [Recovered/Resolved]
  - Meningitis tuberculous [Recovering/Resolving]
  - Tuberculosis [Recovered/Resolved]
